FAERS Safety Report 6649505-3 (Version None)
Quarter: 2010Q1

REPORT INFORMATION
  Report Type: 
  Country: None (occurrence: None)
  Receive Date: 20100324
  Receipt Date: 20100324
  Transmission Date: 20100710
  Serious: Yes (Other)
  Sender: FDA-Public Use
  Company Number: None

PATIENT
  Age: 33 Year
  Sex: Female
  Weight: 68.0396 kg

DRUGS (1)
  1. CYMBALTA [Suspect]
     Indication: PREMENSTRUAL SYNDROME

REACTIONS (6)
  - ABDOMINAL PAIN UPPER [None]
  - ANGER [None]
  - DRUG EXPOSURE DURING PREGNANCY [None]
  - PARAESTHESIA [None]
  - PREGNANCY [None]
  - WITHDRAWAL SYNDROME [None]
